FAERS Safety Report 15614839 (Version 1)
Quarter: 2018Q4

REPORT INFORMATION
  Report Type: Spontaneous
  Country: US (occurrence: US)
  Receive Date: 20181114
  Receipt Date: 20181114
  Transmission Date: 20190205
  Serious: Yes (Other)
  Sender: FDA-Public Use
  Company Number: US-SUN PHARMACEUTICAL INDUSTRIES LTD-2018US-190723

PATIENT
  Age: 35 Year
  Sex: Female

DRUGS (4)
  1. TEMOZOLOMIDE. [Suspect]
     Active Substance: TEMOZOLOMIDE
     Indication: PITUITARY TUMOUR BENIGN
     Dosage: UNK
     Route: 065
  2. CAPECITABINE. [Concomitant]
     Active Substance: CAPECITABINE
     Indication: PITUITARY TUMOUR BENIGN
     Dosage: UNK
     Route: 065
  3. IPILIMUMAB [Concomitant]
     Active Substance: IPILIMUMAB
     Indication: PITUITARY TUMOUR BENIGN
     Dosage: UNK
     Route: 065
  4. NIVOLUMAB [Concomitant]
     Active Substance: NIVOLUMAB
     Indication: PITUITARY TUMOUR BENIGN
     Dosage: UNK
     Route: 065

REACTIONS (2)
  - Hypermutation [Unknown]
  - Drug resistance [Unknown]
